FAERS Safety Report 17954709 (Version 1)
Quarter: 2020Q2

REPORT INFORMATION
  Report Type: Spontaneous
  Country: US (occurrence: US)
  Receive Date: 20200629
  Receipt Date: 20200629
  Transmission Date: 20200714
  Serious: No
  Sender: FDA-Public Use
  Company Number: US-009507513-2006USA007714

PATIENT
  Sex: Male

DRUGS (1)
  1. SEGLUROMET [Suspect]
     Active Substance: ERTUGLIFLOZIN PIDOLATE\METFORMIN HYDROCHLORIDE
     Dosage: 2.5/1000
     Route: 048
     Dates: start: 202006

REACTIONS (2)
  - Muscle discomfort [Unknown]
  - Muscle fatigue [Unknown]

NARRATIVE: CASE EVENT DATE: 202006
